FAERS Safety Report 15312037 (Version 1)
Quarter: 2018Q3

REPORT INFORMATION
  Report Type: Report from Study
  Country: US (occurrence: US)
  Receive Date: 20180823
  Receipt Date: 20180823
  Transmission Date: 20181010
  Serious: Yes (Death, Hospitalization)
  Sender: FDA-Public Use
  Company Number: US-JNJFOC-20180808738

PATIENT
  Age: 80 Year
  Sex: Male

DRUGS (1)
  1. IMBRUVICA [Suspect]
     Active Substance: IBRUTINIB
     Indication: CHRONIC LYMPHOCYTIC LEUKAEMIA
     Route: 048
     Dates: start: 20180501

REACTIONS (7)
  - Hypocalcaemia [Unknown]
  - Disease progression [Fatal]
  - Hyponatraemia [Unknown]
  - Chronic kidney disease [Fatal]
  - Pneumonia aspiration [Unknown]
  - Renal tubular necrosis [Fatal]
  - Urinary tract obstruction [Fatal]

NARRATIVE: CASE EVENT DATE: 20180802
